FAERS Safety Report 7383100-6 (Version None)
Quarter: 2011Q1

REPORT INFORMATION
  Report Type: 
  Country: None (occurrence: None)
  Receive Date: 20110330
  Receipt Date: 20110325
  Transmission Date: 20110831
  Serious: Yes (Other)
  Sender: FDA-Public Use
  Company Number: US-ASTRAZENECA-2007UW12277

PATIENT
  Age: 6448 Day
  Sex: Male
  Weight: 105.5 kg

DRUGS (36)
  1. SEROQUEL [Suspect]
     Route: 048
     Dates: start: 20060101
  2. LITHIUM CARBONATE [Concomitant]
     Indication: BIPOLAR DISORDER
     Dates: start: 19960101
  3. CLONIDINE HCL [Concomitant]
     Indication: PSYCHOMOTOR HYPERACTIVITY
     Dates: start: 20050209
  4. GEODON [Concomitant]
     Indication: BIPOLAR DISORDER
     Dates: start: 20060501
  5. ATIVAN [Concomitant]
     Indication: AGGRESSION
     Dates: start: 20060803
  6. KLONOPIN [Concomitant]
     Dosage: 0.25-0.5 MG B.I.D
     Dates: start: 20060511
  7. RITALIN [Concomitant]
     Indication: INTERMITTENT EXPLOSIVE DISORDER
  8. HALDOL [Concomitant]
     Dosage: 40-180 MG
     Dates: start: 20060308
  9. SEROQUEL [Suspect]
     Dosage: 50 MG - 400 MG
     Route: 048
     Dates: start: 20041014, end: 20060101
  10. ATIVAN [Concomitant]
     Indication: AGITATION
     Dates: start: 20060803
  11. DEPAKOTE ER [Concomitant]
     Indication: MOOD SWINGS
     Dates: start: 19970101
  12. DEPAKOTE ER [Concomitant]
     Indication: BIPOLAR DISORDER
     Dates: start: 19970101
  13. SEROQUEL [Suspect]
     Route: 048
     Dates: end: 20070401
  14. SEROQUEL [Suspect]
     Route: 048
     Dates: end: 20070401
  15. GEODON [Concomitant]
     Dosage: 20-80 MG
     Route: 048
     Dates: start: 20060511
  16. SEROQUEL [Suspect]
     Indication: BIPOLAR DISORDER
     Dosage: 25-400 MG
     Route: 048
     Dates: start: 20040929
  17. SEROQUEL [Suspect]
     Route: 048
     Dates: start: 20060101
  18. DEPAKOTE ER [Concomitant]
     Dosage: 250-2500 MG
     Route: 048
     Dates: start: 20050209
  19. LITHIUM CARBONATE [Concomitant]
     Indication: MOOD SWINGS
     Dates: start: 19960101
  20. GEODON [Concomitant]
     Dosage: 20-80 MG
     Route: 048
     Dates: start: 20060511
  21. RITALIN [Concomitant]
     Indication: ATTENTION DEFICIT/HYPERACTIVITY DISORDER
  22. SEROQUEL [Suspect]
     Indication: PSYCHOTIC DISORDER
     Dosage: 25-400 MG
     Route: 048
     Dates: start: 20040929
  23. RISPERDAL [Concomitant]
     Dosage: 2 MG-4 MG
     Route: 048
     Dates: start: 20030801, end: 20040701
  24. KLONOPIN [Concomitant]
     Indication: DELAYED SLEEP PHASE
     Dates: start: 20040101, end: 20060101
  25. SEROQUEL [Suspect]
     Dosage: 50 MG - 400 MG
     Route: 048
     Dates: start: 20041014, end: 20060101
  26. DEPAKOTE ER [Concomitant]
     Dosage: 250-2500 MG
     Route: 048
     Dates: start: 20050209
  27. LITHIUM CARBONATE [Concomitant]
     Route: 048
     Dates: start: 20050209
  28. KLONOPIN [Concomitant]
     Indication: AGITATION
     Dates: start: 20040101, end: 20060101
  29. KLONOPIN [Concomitant]
     Dosage: 0.25-0.5 MG B.I.D
     Dates: start: 20060511
  30. RISPERDAL [Concomitant]
     Indication: BIPOLAR DISORDER
     Dosage: 5 MG - 400 MG
     Route: 048
     Dates: start: 19970101, end: 20041014
  31. ZYPREXA [Concomitant]
     Indication: BIPOLAR DISORDER
     Route: 048
     Dates: start: 20050725, end: 20050801
  32. LITHIUM CARBONATE [Concomitant]
     Route: 048
     Dates: start: 20050209
  33. CLONIDINE HCL [Concomitant]
     Indication: ATTENTION DEFICIT/HYPERACTIVITY DISORDER
     Dates: start: 20050209
  34. GEODON [Concomitant]
     Indication: AGGRESSION
     Dates: start: 20060501
  35. SYNTHROID [Concomitant]
     Indication: HYPOTHYROIDISM
     Dosage: 100-112.5 MCG EVERY MORNING
     Route: 048
     Dates: start: 20060425
  36. NAVANE [Concomitant]
     Dates: start: 19970101, end: 20050101

REACTIONS (4)
  - BLOOD TRIGLYCERIDES INCREASED [None]
  - TYPE 2 DIABETES MELLITUS [None]
  - TYPE 1 DIABETES MELLITUS [None]
  - ABNORMAL BEHAVIOUR [None]
